FAERS Safety Report 16991569 (Version 1)
Quarter: 2019Q4

REPORT INFORMATION
  Report Type: Other
  Country: None (occurrence: US)
  Receive Date: 20191104
  Receipt Date: 20191104
  Transmission Date: 20200122
  Serious: Yes (Other)
  Sender: FDA-Public Use
  Company Number: US-STANDARD HOMEOPATHIC COMPANY-2076421

PATIENT
  Sex: Female

DRUGS (1)
  1. HYLAND^S CALM [Suspect]
     Active Substance: HOMEOPATHICS
     Indication: RESTLESSNESS
     Route: 048
     Dates: start: 20190922, end: 20191022

REACTIONS (1)
  - Seizure [Unknown]

NARRATIVE: CASE EVENT DATE: 20191022
